FAERS Safety Report 21011952 (Version 2)
Quarter: 2024Q1

REPORT INFORMATION
  Report Type: Spontaneous
  Country: US (occurrence: US)
  Receive Date: 20220627
  Receipt Date: 20240101
  Transmission Date: 20240410
  Serious: Yes (Other)
  Sender: FDA-Public Use
  Company Number: US-PURDUE-USA-2020-0280803

PATIENT
  Sex: Female

DRUGS (6)
  1. HYDROCODONE BITARTRATE AND ACETAMINOPHEN [Suspect]
     Active Substance: ACETAMINOPHEN\HYDROCODONE BITARTRATE
     Indication: Pain
     Dosage: 10-325, UNKNOWN
     Route: 048
     Dates: start: 201104
  2. HYDROCODONE BITARTRATE AND ACETAMINOPHEN [Suspect]
     Active Substance: ACETAMINOPHEN\HYDROCODONE BITARTRATE
     Dosage: 90 PILLS,10-325
     Route: 048
     Dates: start: 201104
  3. CODEINE [Suspect]
     Active Substance: CODEINE
     Indication: Pain
     Dosage: 30 MG, UNKNOWN
     Route: 048
  4. CODEINE [Suspect]
     Active Substance: CODEINE
     Dosage: 120 PILLS
     Route: 048
     Dates: end: 201803
  5. ACETAMINOPHEN\CODEINE PHOSPHATE [Suspect]
     Active Substance: ACETAMINOPHEN\CODEINE PHOSPHATE
     Indication: Pain
     Dosage: UNKNOWN
     Route: 048
  6. ACETAMINOPHEN\CODEINE PHOSPHATE [Suspect]
     Active Substance: ACETAMINOPHEN\CODEINE PHOSPHATE
     Dosage: 120 PILLS
     Route: 048
     Dates: start: 201105

REACTIONS (18)
  - Drug dependence [Unknown]
  - Mental impairment [Unknown]
  - Headache [Unknown]
  - Vision blurred [Unknown]
  - Vertigo [Not Recovered/Not Resolved]
  - Dental caries [Unknown]
  - Dry mouth [Unknown]
  - Weight increased [Unknown]
  - Abdominal pain upper [Unknown]
  - Hyperaesthesia [Unknown]
  - Pain [Unknown]
  - Emotional distress [Unknown]
  - Physical disability [Unknown]
  - Dizziness [Not Recovered/Not Resolved]
  - Lethargy [Unknown]
  - Anxiety [Unknown]
  - Constipation [Unknown]
  - Drug withdrawal syndrome [Unknown]

NARRATIVE: CASE EVENT DATE: 20180101
